FAERS Safety Report 7067340-1 (Version None)
Quarter: 2010Q4

REPORT INFORMATION
  Report Type: 
  Country: None (occurrence: None)
  Receive Date: 20101022
  Receipt Date: 20101022
  Transmission Date: 20110411
  Serious: Yes (Hospitalization)
  Sender: FDA-Public Use
  Company Number: None

PATIENT
  Age: 30 Year
  Sex: Female
  Weight: 65.7716 kg

DRUGS (1)
  1. MIRENA [Suspect]
     Dosage: ONE ONCE INTRA-UTERINE
     Route: 015
     Dates: start: 20100519, end: 20100920

REACTIONS (5)
  - ANXIETY [None]
  - CHEST PAIN [None]
  - STRESS [None]
  - TROPONIN INCREASED [None]
  - VIRAL INFECTION [None]
